FAERS Safety Report 6942346-9 (Version None)
Quarter: 2010Q3

REPORT INFORMATION
  Report Type: 
  Country: None (occurrence: None)
  Receive Date: 20100826
  Receipt Date: 20100603
  Transmission Date: 20110219
  Serious: Yes (Life-Threatening)
  Sender: FDA-Public Use
  Company Number: US-ASTRAZENECA-2010SE25836

PATIENT
  Age: 22 Year
  Sex: Female

DRUGS (3)
  1. SEROQUEL XR [Suspect]
     Dosage: 90 TABLETS OF 300 MG
     Route: 048
  2. EFFEXOR [Suspect]
     Dosage: 30 TABLETS
  3. ADAVAN [Suspect]
     Dosage: UNKNOWN DOSE

REACTIONS (2)
  - OVERDOSE [None]
  - SUICIDE ATTEMPT [None]
